FAERS Safety Report 10912801 (Version 1)
Quarter: 2015Q1

REPORT INFORMATION
  Report Type: Spontaneous
  Country: US (occurrence: None)
  Receive Date: 20150310
  Receipt Date: 20150310
  Transmission Date: 20150721
  Serious: Yes (Life-Threatening)
  Sender: FDA-Public Use
  Company Number: BD-2015-0218

PATIENT
  Weight: 3.6 kg

DRUGS (1)
  1. MORPHINE SULFATE (MORPHINE SULFATE) UNKNOWN [Suspect]
     Active Substance: MORPHINE SULFATE
     Indication: PAIN

REACTIONS (2)
  - Cardiac arrest [None]
  - Apnoea [None]
